FAERS Safety Report 5522088-7 (Version None)
Quarter: 2007Q4

REPORT INFORMATION
  Report Type: 
  Country: None (occurrence: None)
  Receive Date: 20071120
  Receipt Date: 20071112
  Transmission Date: 20080405
  Serious: Yes (Other)
  Sender: FDA-Public Use
  Company Number: AU-BRISTOL-MYERS SQUIBB COMPANY-13987011

PATIENT
  Age: 16 Year
  Sex: Female

DRUGS (7)
  1. CISPLATIN [Suspect]
  2. CYCLOPHOSPHAMIDE [Suspect]
  3. MESNA [Suspect]
     Indication: CYSTITIS HAEMORRHAGIC
  4. DOXORUBICIN HCL [Suspect]
  5. METHOTREXATE [Suspect]
     Dosage: 12 G/M2
  6. MELPHALAN [Suspect]
  7. GRANULOCYTE CSF [Suspect]

REACTIONS (1)
  - HYPERSENSITIVITY [None]
